FAERS Safety Report 9006959 (Version 2)
Quarter: 2013Q1

REPORT INFORMATION
  Report Type: Report from Study
  Country: US (occurrence: US)
  Receive Date: 20130110
  Receipt Date: 20130111
  Transmission Date: 20140127
  Serious: Yes (Hospitalization, Other)
  Sender: FDA-Public Use
  Company Number: US-ABBOTT-13P-163-1032776-00

PATIENT
  Sex: Female

DRUGS (3)
  1. HUMIRA [Suspect]
     Indication: PSORIASIS
     Dates: end: 201206
  2. HUMIRA [Suspect]
     Indication: PSORIATIC ARTHROPATHY
  3. UNNAMED MEDICATION [Concomitant]
     Indication: HYPERTENSION

REACTIONS (4)
  - Developmental hip dysplasia [Recovered/Resolved]
  - Developmental hip dysplasia [Recovered/Resolved]
  - Psoriasis [Not Recovered/Not Resolved]
  - Muscle spasms [Not Recovered/Not Resolved]
